FAERS Safety Report 10185085 (Version 1)
Quarter: 2014Q2

REPORT INFORMATION
  Report Type: Spontaneous
  Country: US (occurrence: None)
  Receive Date: 20140519
  Receipt Date: 20140519
  Transmission Date: 20141212
  Serious: Yes (Other)
  Sender: FDA-Public Use
  Company Number: 2014AP002973

PATIENT
  Age: 20 Year
  Sex: Female

DRUGS (2)
  1. LEVETIRACETAM [Suspect]
     Indication: GINGIVAL HYPERPLASIA
  2. PHENYTOIN (PHENYTOIN) [Concomitant]

REACTIONS (2)
  - Generalised tonic-clonic seizure [None]
  - Condition aggravated [None]
